FAERS Safety Report 22619746 (Version 1)
Quarter: 2023Q2

REPORT INFORMATION
  Report Type: Spontaneous
  Country: PL (occurrence: PL)
  Receive Date: 20230620
  Receipt Date: 20230620
  Transmission Date: 20230722
  Serious: Yes (Hospitalization, Other)
  Sender: FDA-Public Use
  Company Number: PL-MEDA-M-EU-2012110103

PATIENT
  Age: 25 Year
  Sex: Female

DRUGS (12)
  1. BROMOCRIPTINE MESYLATE [Suspect]
     Active Substance: BROMOCRIPTINE MESYLATE
     Indication: Prolactin-producing pituitary tumour
     Dosage: 2.5 MILLIGRAM, TID(GRADUALLY REDUCED UNTIL COMPLETE DISCONTINUATION)
     Route: 065
     Dates: start: 200709, end: 2008
  2. BROMOCRIPTINE MESYLATE [Suspect]
     Active Substance: BROMOCRIPTINE MESYLATE
     Indication: Pituitary apoplexy
     Dosage: 2.5 MILLIGRAM, TID(GRADUALLY REDUCED UNTIL COMPLETE DISCONTINUATION)
     Route: 065
     Dates: start: 200709, end: 2008
  3. BROMOCRIPTINE MESYLATE [Suspect]
     Active Substance: BROMOCRIPTINE MESYLATE
     Dosage: 3.75 MILLIGRAM, QD
     Route: 065
     Dates: start: 2008
  4. BROMOCRIPTINE MESYLATE [Suspect]
     Active Substance: BROMOCRIPTINE MESYLATE
     Dosage: 3.75 MILLIGRAM, QD
     Route: 065
     Dates: start: 2008
  5. BROMOCRIPTINE MESYLATE [Suspect]
     Active Substance: BROMOCRIPTINE MESYLATE
     Dosage: 1.25 MILLIGRAM, QD (24 HOURS)
     Route: 065
  6. BROMOCRIPTINE MESYLATE [Suspect]
     Active Substance: BROMOCRIPTINE MESYLATE
     Dosage: 0.625 MILLIGRAM, QD
     Route: 065
  7. HYDROCORTISONE [Concomitant]
     Active Substance: HYDROCORTISONE
     Indication: Hormone replacement therapy
     Dosage: 200 MILLIGRAM, QD
     Route: 042
  8. HYDROCORTISONE [Concomitant]
     Active Substance: HYDROCORTISONE
     Dosage: 40 MILLIGRAM,BID (20 MG-10 MG-10 MG)
     Route: 048
  9. HYDROCORTISONE [Concomitant]
     Active Substance: HYDROCORTISONE
     Dosage: 30 MILLIGRAM, QD
     Route: 048
  10. HYDROCORTISONE [Concomitant]
     Active Substance: HYDROCORTISONE
     Dosage: 40 MILLIGRAM, QD
     Route: 048
  11. VERAPAMIL [Concomitant]
     Active Substance: VERAPAMIL HYDROCHLORIDE
     Indication: Tocolysis
     Dosage: 40 MILLIGRAM, BID
     Route: 065
  12. FENOTEROL [Concomitant]
     Active Substance: FENOTEROL
     Indication: Tocolysis
     Dosage: 5 MILLIGRAM, BID
     Route: 065

REACTIONS (11)
  - Maternal exposure during pregnancy [Recovered/Resolved]
  - Drug ineffective [Unknown]
  - Neurological decompensation [Unknown]
  - Adenoma benign [Recovered/Resolved]
  - Haematoma [Unknown]
  - Visual field defect [Recovered/Resolved]
  - General physical health deterioration [Unknown]
  - Visual acuity reduced [Recovered/Resolved]
  - Headache [Unknown]
  - Dizziness [Unknown]
  - Normal newborn [Recovered/Resolved]
